FAERS Safety Report 21870532 (Version 2)
Quarter: 2023Q1

REPORT INFORMATION
  Report Type: Report from Study
  Country: CA (occurrence: CA)
  Receive Date: 20230117
  Receipt Date: 20230223
  Transmission Date: 20230417
  Serious: Yes (Life-Threatening, Other)
  Sender: FDA-Public Use
  Company Number: CA-IPSEN Group, Research and Development-2022-25192

PATIENT
  Age: 63 Year
  Sex: Female

DRUGS (13)
  1. LANREOTIDE ACETATE [Suspect]
     Active Substance: LANREOTIDE ACETATE
     Indication: Neuroendocrine tumour
     Dosage: 120 MG EVERY 4 WEEKS
     Route: 058
     Dates: start: 20220802
  2. HYDROMORPHONE HCL [Suspect]
     Active Substance: HYDROMORPHONE HYDROCHLORIDE
     Indication: Product used for unknown indication
     Dosage: 1 CO
  3. HYDROMORPHONE HCL [Suspect]
     Active Substance: HYDROMORPHONE HYDROCHLORIDE
     Dosage: 1-2 CO PRN
  4. INSULIN NOS [Suspect]
     Active Substance: INSULIN NOS
     Indication: Product used for unknown indication
     Route: 065
  5. INSULIN NOS [Suspect]
     Active Substance: INSULIN NOS
     Dosage: DOSE REDUCED
     Route: 065
  6. POLYETHYLENE GLYCOL [Concomitant]
     Active Substance: POLYETHYLENE GLYCOL
     Dosage: 3350 POWDER PRN
  7. UNSPECIFIED INGREDIENT [Concomitant]
     Active Substance: UNSPECIFIED INGREDIENT
     Dosage: 10-2 CO WITH MEALS
  8. SENOKOT [Concomitant]
     Active Substance: SENNOSIDES
     Dosage: 1-2 CO PRN
  9. OMEPRAZOLE [Concomitant]
     Active Substance: OMEPRAZOLE
     Dosage: 40 MG 1 CO PID
  10. MIXTARD HUMAN 70/30 [Concomitant]
     Active Substance: INSULIN HUMAN
     Dosage: 30 HM 10 - 12 UNITS TWICE A DAY
  11. DOMPERIDONE [Concomitant]
     Active Substance: DOMPERIDONE
     Dosage: 10 MG PRN
  12. ONDANSETRON [Concomitant]
     Active Substance: ONDANSETRON
     Dosage: 8 MG
  13. TRAMADOL [Concomitant]
     Active Substance: TRAMADOL

REACTIONS (60)
  - Suicidal ideation [Unknown]
  - Tumour pain [Recovering/Resolving]
  - Brain neoplasm [Not Recovered/Not Resolved]
  - Nephrolithiasis [Unknown]
  - Diabetes mellitus inadequate control [Unknown]
  - Tearfulness [Not Recovered/Not Resolved]
  - Anger [Recovering/Resolving]
  - Respiratory rate increased [Recovered/Resolved]
  - Pain [Unknown]
  - Gastrointestinal pain [Unknown]
  - Constipation [Unknown]
  - Injection site pain [Recovered/Resolved]
  - Weight decreased [Unknown]
  - Psychiatric symptom [Unknown]
  - Asthenia [Not Recovered/Not Resolved]
  - Hypoaesthesia eye [Not Recovered/Not Resolved]
  - Asthenopia [Not Recovered/Not Resolved]
  - Pain [Recovering/Resolving]
  - Abdominal pain upper [Not Recovered/Not Resolved]
  - Asthenia [Not Recovered/Not Resolved]
  - Decreased appetite [Not Recovered/Not Resolved]
  - Respiratory rate increased [Not Recovered/Not Resolved]
  - Fat tissue decreased [Not Recovered/Not Resolved]
  - Injection site pain [Recovering/Resolving]
  - Pyrexia [Recovered/Resolved]
  - Injection site pain [Recovering/Resolving]
  - Blood glucose increased [Recovering/Resolving]
  - Thirst [Not Recovered/Not Resolved]
  - Dry mouth [Not Recovered/Not Resolved]
  - Depression [Recovering/Resolving]
  - Tongue blistering [Not Recovered/Not Resolved]
  - Oral mucosal blistering [Not Recovered/Not Resolved]
  - Ageusia [Not Recovered/Not Resolved]
  - Respiratory rate increased [Not Recovered/Not Resolved]
  - Injection site mass [Not Recovered/Not Resolved]
  - Dizziness [Not Recovered/Not Resolved]
  - Fatigue [Not Recovered/Not Resolved]
  - Loss of personal independence in daily activities [Not Recovered/Not Resolved]
  - Drug ineffective [Unknown]
  - Adverse drug reaction [Unknown]
  - Injection site pain [Recovered/Resolved]
  - Injection site pain [Recovering/Resolving]
  - Abnormal behaviour [Unknown]
  - Weight increased [Unknown]
  - Increased appetite [Recovering/Resolving]
  - Back pain [Recovering/Resolving]
  - Fatigue [Unknown]
  - Asthenia [Unknown]
  - Bed rest [Unknown]
  - Drug abuser [Unknown]
  - Injection site pain [Unknown]
  - Injection site pain [Not Recovered/Not Resolved]
  - Blood glucose increased [Not Recovered/Not Resolved]
  - Headache [Not Recovered/Not Resolved]
  - Nausea [Not Recovered/Not Resolved]
  - Fatigue [Unknown]
  - Paraesthesia [Unknown]
  - Hypoaesthesia [Unknown]
  - Myopathy [Unknown]
  - Muscular weakness [Unknown]

NARRATIVE: CASE EVENT DATE: 20220101
